FAERS Safety Report 23930825 (Version 2)
Quarter: 2024Q2

REPORT INFORMATION
  Report Type: Other
  Country: US (occurrence: None)
  Receive Date: 20240603
  Receipt Date: 20240607
  Transmission Date: 20240716
  Serious: Yes (Death, Hospitalization, Other)
  Sender: FDA-Public Use
  Company Number: US-ROCHE-3563305

PATIENT
  Age: 74 Year
  Sex: Male
  Weight: 71.732 kg

DRUGS (10)
  1. ESBRIET [Suspect]
     Active Substance: PIRFENIDONE
     Indication: Idiopathic pulmonary fibrosis
     Dosage: DATE OF TREATMENT :03/MAY/2023
     Route: 048
     Dates: start: 2019, end: 20240424
  2. ESBRIET [Suspect]
     Active Substance: PIRFENIDONE
     Indication: Interstitial lung disease
  3. ALDACTONE [Concomitant]
     Active Substance: SPIRONOLACTONE
  4. AMLODIPINE [Concomitant]
     Active Substance: AMLODIPINE BESYLATE
  5. CILOSTAZOL [Concomitant]
     Active Substance: CILOSTAZOL
  6. LOSARTAN [Concomitant]
     Active Substance: LOSARTAN
  7. METOPROLOL TARTRATE [Concomitant]
     Active Substance: METOPROLOL TARTRATE
  8. POTASSIUM CHLORIDE [Concomitant]
     Active Substance: POTASSIUM CHLORIDE
  9. SIMVASTATIN [Concomitant]
     Active Substance: SIMVASTATIN
  10. XARELTO [Concomitant]
     Active Substance: RIVAROXABAN

REACTIONS (18)
  - Death [Fatal]
  - Dizziness [Recovered/Resolved]
  - Pneumonitis [Recovered/Resolved]
  - Pulmonary oedema [Recovered/Resolved]
  - Haemorrhage [Recovered/Resolved]
  - Ulcer [Recovered/Resolved]
  - Fibrosis [Recovered/Resolved]
  - Fluid retention [Recovered/Resolved]
  - Asthenia [Recovered/Resolved]
  - Decreased appetite [Recovered/Resolved]
  - Dehydration [Recovered/Resolved]
  - Volvulus [Recovered/Resolved]
  - Pulmonary hypertension [Unknown]
  - Extrasystoles [Recovered/Resolved]
  - Contusion [Unknown]
  - Crepitations [Unknown]
  - Hyperlipidaemia [Unknown]
  - Deep vein thrombosis [Unknown]

NARRATIVE: CASE EVENT DATE: 20220101
